FAERS Safety Report 8261078-0 (Version None)
Quarter: 2012Q2

REPORT INFORMATION
  Report Type: 
  Country: None (occurrence: None)
  Receive Date: 20120405
  Receipt Date: 20120329
  Transmission Date: 20120825
  Serious: Yes (Other)
  Sender: FDA-Public Use
  Company Number: PHHY2012FR027595

PATIENT
  Age: 62 Year
  Sex: Female

DRUGS (2)
  1. LEVOTHYROXINE SODIUM [Concomitant]
     Dosage: 87.5 UG, QD
  2. ZOLEDRONOC ACID [Suspect]
     Indication: OSTEOPOROSIS
     Route: 042
     Dates: start: 20120302

REACTIONS (8)
  - BACK PAIN [None]
  - DEPRESSED MOOD [None]
  - PYREXIA [None]
  - PAIN IN EXTREMITY [None]
  - FATIGUE [None]
  - INFLUENZA LIKE ILLNESS [None]
  - PARAESTHESIA [None]
  - ABDOMINAL PAIN UPPER [None]
